FAERS Safety Report 11590432 (Version 2)
Quarter: 2015Q4

REPORT INFORMATION
  Report Type: Spontaneous
  Country: US (occurrence: US)
  Receive Date: 20151002
  Receipt Date: 20151016
  Transmission Date: 20160304
  Serious: No
  Sender: FDA-Public Use
  Company Number: US-GLAXOSMITHKLINE-US2015139328

PATIENT
  Age: 44 Year
  Sex: Female

DRUGS (1)
  1. ABREVA [Suspect]
     Active Substance: DOCOSANOL
     Indication: ORAL HERPES
     Dosage: UNK
     Dates: start: 201509, end: 201509

REACTIONS (8)
  - Condition aggravated [Recovered/Resolved]
  - Application site burn [Unknown]
  - Hypersensitivity [Unknown]
  - Drug ineffective [Unknown]
  - Application site pain [Not Recovered/Not Resolved]
  - Paraesthesia [Unknown]
  - Oral herpes [Recovered/Resolved]
  - Application site discolouration [Not Recovered/Not Resolved]
